FAERS Safety Report 4388600-9 (Version None)
Quarter: 2004Q2

REPORT INFORMATION
  Report Type: 
  Country: None (occurrence: None)
  Receive Date: 20040624
  Receipt Date: 20040611
  Transmission Date: 20050107
  Serious: Yes (Death, Hospitalization)
  Sender: FDA-Public Use
  Company Number: JP-JNJFOC-20040603705

PATIENT
  Age: 66 Year
  Sex: Male

DRUGS (7)
  1. FENTANYL [Suspect]
     Indication: CANCER PAIN
     Dosage: 2.5 MG, TRANSDERMAL
     Route: 062
     Dates: start: 20031125, end: 20031130
  2. FLUNITRAZEPAM (FLUNITRAZEPAM) [Concomitant]
  3. TIAPRIDE HYDROCHLORIDE (TIAPRIDE HYDROCHLORIDE) [Concomitant]
  4. FUROSEMIDE [Concomitant]
  5. MORPHINE [Concomitant]
  6. DICLOFENAC SODIUM [Concomitant]
  7. HYROCORTISONE SODIUM SUCCINATE (HYDROCORTISONE SODIUM SUCCINATE) [Concomitant]

REACTIONS (6)
  - BLOOD POTASSIUM INCREASED [None]
  - BLOOD UREA INCREASED [None]
  - CEREBRAL INFARCTION [None]
  - HEPATIC FAILURE [None]
  - RESTLESSNESS [None]
  - WHITE BLOOD CELL COUNT INCREASED [None]
